FAERS Safety Report 23425350 (Version 1)
Quarter: 2024Q1

REPORT INFORMATION
  Report Type: Report from Study
  Country: US (occurrence: US)
  Receive Date: 20240122
  Receipt Date: 20240122
  Transmission Date: 20240410
  Serious: No
  Sender: FDA-Public Use
  Company Number: US-Accord-373984

PATIENT
  Age: 64 Year
  Sex: Male

DRUGS (1)
  1. CLOZAPINE [Suspect]
     Active Substance: CLOZAPINE
     Indication: Product used for unknown indication

REACTIONS (16)
  - Mean cell volume increased [Unknown]
  - Red blood cell count decreased [Unknown]
  - Haemoglobin decreased [Unknown]
  - Mean cell haemoglobin concentration decreased [Unknown]
  - Platelet count decreased [Unknown]
  - Basophil count decreased [Unknown]
  - Blood albumin decreased [Unknown]
  - Immunoglobulins increased [Unknown]
  - Blood urea nitrogen/creatinine ratio increased [Unknown]
  - Blood calcium decreased [Unknown]
  - Blood chloride increased [Unknown]
  - Carbon dioxide increased [Unknown]
  - Blood creatinine decreased [Unknown]
  - Blood glucose decreased [Unknown]
  - Blood sodium increased [Unknown]
  - Protein total decreased [Unknown]

NARRATIVE: CASE EVENT DATE: 20230802
